FAERS Safety Report 17046837 (Version 1)
Quarter: 2019Q4

REPORT INFORMATION
  Report Type: Report from Study
  Country: US (occurrence: US)
  Receive Date: 20191119
  Receipt Date: 20191119
  Transmission Date: 20200122
  Serious: No
  Sender: FDA-Public Use
  Company Number: NVSC2019US040668

PATIENT
  Sex: Male

DRUGS (1)
  1. ENTRESTO [Suspect]
     Active Substance: SACUBITRIL\VALSARTAN
     Indication: PRODUCT USED FOR UNKNOWN INDICATION
     Dosage: 1 DF  (SACUBITRIL 24MG AND VALSARTAN 26MG)
     Route: 048

REACTIONS (3)
  - Fatigue [Unknown]
  - Wheezing [Unknown]
  - Dyspnoea [Unknown]
